FAERS Safety Report 10532844 (Version 1)
Quarter: 2014Q4

REPORT INFORMATION
  Report Type: Spontaneous
  Country: CH (occurrence: CH)
  Receive Date: 20141022
  Receipt Date: 20141022
  Transmission Date: 20150529
  Serious: Yes (Hospitalization, Other)
  Sender: FDA-Public Use
  Company Number: CH-PFIZER INC-2014282956

PATIENT
  Age: 58 Year
  Sex: Female

DRUGS (4)
  1. ZOLOFT [Suspect]
     Active Substance: SERTRALINE HYDROCHLORIDE
     Dosage: 50 MG, DAILY
     Route: 048
     Dates: end: 20140820
  2. ZOLOFT [Suspect]
     Active Substance: SERTRALINE HYDROCHLORIDE
     Indication: DEPRESSION
     Dosage: 100 MG, THERAPY SINCE YEARS
     Route: 048
  3. PRETUVAL [Suspect]
     Active Substance: ACETAMINOPHEN\DEXTROMETHORPHAN HYDROBROMIDE\PSEUDOEPHEDRINE HYDROCHLORIDE
     Indication: NASOPHARYNGITIS
     Dosage: 1 DF, EVERY 12 HOURS
     Route: 048
     Dates: start: 20140718, end: 20140814
  4. FLUCAZOL [Suspect]
     Active Substance: FLUCONAZOLE
     Dosage: 150 MG, SINGLE
     Dates: start: 20140715, end: 20140715

REACTIONS (5)
  - International normalised ratio increased [Recovering/Resolving]
  - Acute hepatic failure [Recovered/Resolved]
  - Headache [Recovered/Resolved]
  - Hepatitis cholestatic [Recovered/Resolved]
  - Nasopharyngitis [Recovered/Resolved]

NARRATIVE: CASE EVENT DATE: 20140717
